FAERS Safety Report 14867531 (Version 2)
Quarter: 2018Q3

REPORT INFORMATION
  Report Type: Spontaneous
  Country: US (occurrence: US)
  Receive Date: 20180508
  Receipt Date: 20180914
  Transmission Date: 20181010
  Serious: Yes (Hospitalization)
  Sender: FDA-Public Use
  Company Number: US-VIFOR (INTERNATIONAL) INC.-VIT-2018-04181

PATIENT
  Age: 79 Year
  Sex: Male

DRUGS (9)
  1. HUMULIN R [Concomitant]
     Active Substance: INSULIN HUMAN
  2. PLAVIX [Concomitant]
     Active Substance: CLOPIDOGREL BISULFATE
  3. HUMULIN N [Concomitant]
     Active Substance: INSULIN HUMAN
  4. VELTASSA [Suspect]
     Active Substance: PATIROMER
     Indication: HYPERKALAEMIA
     Dosage: FULL 1 PACKET IN 3 OZ OF WATER AND DRINK FULL AMOUNT DAILY
     Route: 048
     Dates: start: 20161025
  5. LIPITOR [Concomitant]
     Active Substance: ATORVASTATIN CALCIUM
  6. FENOFIBRATE MICRONIZED [Concomitant]
  7. ASPIRIN. [Concomitant]
     Active Substance: ASPIRIN
  8. COZAAR [Concomitant]
     Active Substance: LOSARTAN POTASSIUM
  9. METOPROLOL TARTRATE. [Concomitant]
     Active Substance: METOPROLOL TARTRATE

REACTIONS (3)
  - Hospitalisation [Unknown]
  - Fall [Unknown]
  - Blood glucose decreased [Unknown]

NARRATIVE: CASE EVENT DATE: 201804
